FAERS Safety Report 17265357 (Version 2)
Quarter: 2020Q1

REPORT INFORMATION
  Report Type: Report from Study
  Country: None (occurrence: US)
  Receive Date: 20200114
  Receipt Date: 20200211
  Transmission Date: 20200409
  Serious: Yes (Death, Hospitalization)
  Sender: FDA-Public Use
  Company Number: US-ABBVIE-20K-163-3226454-00

PATIENT
  Age: 64 Year
  Sex: Male

DRUGS (2)
  1. VENCLEXTA [Suspect]
     Active Substance: VENETOCLAX
     Indication: ACUTE MYELOID LEUKAEMIA
     Dosage: TAKE 1 TABLET BY MOUTH ALONG WITH 2-10MG TABLETS FOR A TOTAL OF 70MG EVERY DAY
     Route: 048
  2. VENCLEXTA [Suspect]
     Active Substance: VENETOCLAX
     Dosage: TAKE 2 TABLET(S) BY MOUTH ALONG WITH 1-50MG TABLET FOR A TOTAL OF 70MG EVERY DAY
     Route: 048
     Dates: end: 20200111

REACTIONS (3)
  - Death [Fatal]
  - Off label use [Unknown]
  - Chemotherapy [Unknown]

NARRATIVE: CASE EVENT DATE: 20200111
